FAERS Safety Report 7211619-7 (Version None)
Quarter: 2011Q1

REPORT INFORMATION
  Report Type: 
  Country: None (occurrence: None)
  Receive Date: 20110105
  Receipt Date: 20101229
  Transmission Date: 20110831
  Serious: Yes (Hospitalization)
  Sender: FDA-Public Use
  Company Number: US-ASTRAZENECA-2010SE55655

PATIENT
  Age: 31235 Day
  Sex: Male

DRUGS (19)
  1. APIXABAN [Suspect]
     Route: 048
     Dates: start: 20100607
  2. ASPIRIN [Concomitant]
  3. ALTACE [Concomitant]
     Dates: start: 20100704
  4. PLACEBO [Suspect]
     Route: 048
     Dates: start: 20100607
  5. APIXABAN [Suspect]
     Indication: THROMBOSIS PROPHYLAXIS
     Route: 048
     Dates: start: 20100528, end: 20100605
  6. PLACEBO [Suspect]
     Indication: THROMBOSIS PROPHYLAXIS
     Route: 048
     Dates: start: 20100528, end: 20100605
  7. CLOPIDOGREL BISULFATE [Concomitant]
  8. LIPITOR [Concomitant]
  9. RAMIPRIL [Concomitant]
  10. VESICARE [Concomitant]
     Dates: start: 20100607
  11. RAZADYNE [Suspect]
     Route: 065
     Dates: start: 20100704
  12. PROTONIX [Concomitant]
     Dates: start: 20100704
  13. SYMBICORT [Suspect]
     Route: 055
     Dates: start: 20100607
  14. SOTALOL HCL [Concomitant]
  15. PANTOPRAZOLE [Concomitant]
     Dates: start: 20100607
  16. GALANTAMINE HYDROBROMIDE [Concomitant]
  17. ACYCLOVIR [Concomitant]
     Dates: start: 20100704
  18. MEGACE [Concomitant]
     Dates: start: 20100718
  19. RANEXA [Concomitant]
     Dates: start: 20100830

REACTIONS (6)
  - NON-CARDIAC CHEST PAIN [None]
  - TREMOR [None]
  - CHRONIC OBSTRUCTIVE PULMONARY DISEASE [None]
  - OROPHARYNGEAL PAIN [None]
  - CARDIAC FAILURE CONGESTIVE [None]
  - HICCUPS [None]
